FAERS Safety Report 10570115 (Version 1)
Quarter: 2014Q4

REPORT INFORMATION
  Report Type: Spontaneous
  Country: US (occurrence: None)
  Receive Date: 20141105
  Receipt Date: 20141105
  Transmission Date: 20150529
  Serious: Yes (Life-Threatening, Hospitalization)
  Sender: FDA-Public Use
  Company Number: 2014RD000057

PATIENT
  Age: 73 Year
  Sex: Female

DRUGS (1)
  1. IPRATROPIUM BROMIDE AND ALBUTEROL SULFATE [Suspect]
     Active Substance: ALBUTEROL SULFATE\IPRATROPIUM BROMIDE
     Indication: BRONCHOSPASM
     Dosage: 1 VIAL
     Route: 055
     Dates: start: 201211

REACTIONS (6)
  - Product quality issue [None]
  - Oxygen saturation decreased [None]
  - Drug ineffective [None]
  - Dyspnoea [None]
  - Fluid imbalance [None]
  - Intentional product misuse [None]

NARRATIVE: CASE EVENT DATE: 2013
